FAERS Safety Report 9621088 (Version 2)
Quarter: 2013Q4

REPORT INFORMATION
  Report Type: Report from Study
  Country: IT (occurrence: IT)
  Receive Date: 20131015
  Receipt Date: 20131015
  Transmission Date: 20140711
  Serious: Yes (Life-Threatening, Other)
  Sender: FDA-Public Use
  Company Number: IT-ASTELLAS-2013EU008456

PATIENT
  Age: 14 Year
  Sex: Male

DRUGS (1)
  1. TACROLIMUS CAPSULES [Suspect]
     Indication: PROPHYLAXIS AGAINST TRANSPLANT REJECTION
     Dosage: 5 MG, BID
     Route: 048
     Dates: start: 20130904

REACTIONS (3)
  - Bradycardia [Recovered/Resolved]
  - Electrolyte imbalance [Unknown]
  - Hypotension [Unknown]
